FAERS Safety Report 8474455-X (Version None)
Quarter: 2012Q2

REPORT INFORMATION
  Report Type: 
  Country: None (occurrence: None)
  Receive Date: 20120628
  Receipt Date: 20120625
  Transmission Date: 20120825
  Serious: Yes (Other)
  Sender: FDA-Public Use
  Company Number: PHEH2012US012666

PATIENT
  Sex: Male

DRUGS (1)
  1. EXJADE [Suspect]
     Indication: HAEMOCHROMATOSIS
     Dosage: 125 MG, DAILY
     Route: 048

REACTIONS (2)
  - MALAISE [None]
  - VOMITING [None]
